FAERS Safety Report 21042240 (Version 1)
Quarter: 2022Q3

REPORT INFORMATION
  Report Type: Spontaneous
  Country: IE (occurrence: IE)
  Receive Date: 20220705
  Receipt Date: 20220705
  Transmission Date: 20221027
  Serious: Yes (Hospitalization)
  Sender: FDA-Public Use
  Company Number: IE-BAXTER-2022BAX009304

PATIENT
  Age: 17 Year
  Sex: Female
  Weight: 55 kg

DRUGS (10)
  1. ACETAMINOPHEN [Suspect]
     Active Substance: ACETAMINOPHEN
     Indication: Product used for unknown indication
     Dosage: PRN
     Route: 065
  2. SODIUM CHLORIDE [Suspect]
     Active Substance: SODIUM CHLORIDE
     Indication: Medication dilution
     Dosage: DAPTOMYCIN 440 MG IN 100 ML SODIUM CHLORIDE 0.9% SV200
     Route: 042
     Dates: start: 20220415, end: 20220425
  3. SODIUM CHLORIDE [Suspect]
     Active Substance: SODIUM CHLORIDE
     Dosage: CEFTRIAXONE 2000 MG IN 50 ML NACL 0.9% SV100
     Route: 042
     Dates: start: 20220415
  4. WATER FOR INJECTION [Suspect]
     Active Substance: WATER
     Indication: Medication dilution
     Route: 042
     Dates: start: 20220415
  5. CEFTRIAXONE [Suspect]
     Active Substance: CEFTRIAXONE
     Indication: Osteomyelitis
     Dosage: CEFTRIAXONE 2000MG IN 50ML NACL 0.9% SV100
     Route: 042
     Dates: start: 20220420
  6. CEFTRIAXONE [Suspect]
     Active Substance: CEFTRIAXONE
     Route: 042
     Dates: start: 20200415
  7. FLAGYL [Suspect]
     Active Substance: METRONIDAZOLE\METRONIDAZOLE HYDROCHLORIDE
     Indication: Product used for unknown indication
     Route: 065
  8. DAPTOMYCIN [Suspect]
     Active Substance: DAPTOMYCIN
     Indication: Osteomyelitis
     Dosage: DAPTOMYCIN 440MG IN 100ML SODIUM CHLORIDE 0.9% SV200
     Route: 042
     Dates: start: 20220420, end: 20220425
  9. DAPTOMYCIN [Suspect]
     Active Substance: DAPTOMYCIN
     Dosage: DAPTOMYCIN 440MG IN 100ML SODIUM CHLORIDE 0.9% SV200
     Route: 042
     Dates: start: 20220415, end: 20220425
  10. CODEINE PHOSPHATE\IBUPROFEN [Suspect]
     Active Substance: CODEINE PHOSPHATE\IBUPROFEN
     Indication: Product used for unknown indication
     Dosage: AS REQUIRED
     Route: 065

REACTIONS (8)
  - Peripheral swelling [Unknown]
  - Pruritus [Unknown]
  - Skin discolouration [Unknown]
  - Skin exfoliation [Unknown]
  - Peripheral coldness [Unknown]
  - Decreased appetite [Unknown]
  - Rash papular [Unknown]
  - Nausea [Unknown]

NARRATIVE: CASE EVENT DATE: 20220420
